FAERS Safety Report 8472894-4 (Version None)
Quarter: 2012Q2

REPORT INFORMATION
  Report Type: 
  Country: None (occurrence: None)
  Receive Date: 20120622
  Receipt Date: 20120622
  Transmission Date: 20120825
  Serious: Yes (Disabling)
  Sender: FDA-Public Use
  Company Number: None

PATIENT
  Age: 59 Year
  Sex: Female
  Weight: 79.3795 kg

DRUGS (1)
  1. LEVOFLOXACIN [Suspect]
     Indication: ABDOMINAL PAIN UPPER
     Dosage: 10  ONE A DAY
     Dates: start: 20120324, end: 20120330

REACTIONS (3)
  - MUSCULOSKELETAL PAIN [None]
  - MUSCULOSKELETAL STIFFNESS [None]
  - SLEEP DISORDER [None]
